FAERS Safety Report 9814584 (Version 2)
Quarter: 2014Q1

REPORT INFORMATION
  Report Type: Spontaneous
  Country: US (occurrence: US)
  Receive Date: 20140113
  Receipt Date: 20140113
  Transmission Date: 20141002
  Serious: Yes (Hospitalization)
  Sender: FDA-Public Use
  Company Number: US-B.I. PHARMACEUTICALS,INC./RIDGEFIELD-2013-BI-22486BP

PATIENT
  Sex: Female
  Weight: 80.74 kg

DRUGS (10)
  1. PRADAXA [Suspect]
     Dosage: 300 MG
     Route: 048
     Dates: start: 20110309, end: 20120427
  2. VITAMIN D [Concomitant]
     Route: 048
  3. ALBUTEROL SULFATE NEB [Concomitant]
     Dates: start: 2008
  4. ASPIRIN [Concomitant]
     Dosage: 81 MG
     Route: 048
  5. MULTAQ [Concomitant]
     Indication: ATRIAL FIBRILLATION
     Dosage: 400 MG
     Route: 048
  6. MULTAQ [Concomitant]
     Indication: ATRIAL FLUTTER
  7. LASIX [Concomitant]
     Dosage: 40 MG
     Route: 048
     Dates: start: 2008
  8. CARDIZEM [Concomitant]
     Dosage: 120 MG
     Route: 048
  9. ADVAIR DISKUS [Concomitant]
  10. OXYGEN [Concomitant]
     Indication: CHRONIC OBSTRUCTIVE PULMONARY DISEASE

REACTIONS (3)
  - Gastrointestinal haemorrhage [Unknown]
  - Haemorrhagic anaemia [Unknown]
  - Coagulopathy [Unknown]
